FAERS Safety Report 16643389 (Version 2)
Quarter: 2019Q3

REPORT INFORMATION
  Report Type: Spontaneous
  Country: US (occurrence: US)
  Receive Date: 20190729
  Receipt Date: 20190812
  Transmission Date: 20191004
  Serious: No
  Sender: FDA-Public Use
  Company Number: US-PFIZER INC-2019324270

PATIENT
  Age: 32 Year

DRUGS (1)
  1. PREGABALIN. [Suspect]
     Active Substance: PREGABALIN
     Indication: INTERVERTEBRAL DISC PROTRUSION
     Dosage: ONE CAPSULE EVERY 8 HOURS
     Route: 048

REACTIONS (2)
  - Asthma [Unknown]
  - Drug hypersensitivity [Unknown]
